FAERS Safety Report 24630690 (Version 1)
Quarter: 2024Q4

REPORT INFORMATION
  Report Type: Report from Study
  Country: BR (occurrence: BR)
  Receive Date: 20241118
  Receipt Date: 20241118
  Transmission Date: 20250114
  Serious: Yes (Death, Other)
  Sender: IPSEN BIOPHARMACEUTICALS, INC.
  Company Number: BR-IPSEN Group, Research and Development-2024-16723

PATIENT
  Age: 77 Year
  Sex: Female
  Weight: 82 kg

DRUGS (9)
  1. LANREOTIDE ACETATE [Suspect]
     Active Substance: LANREOTIDE ACETATE
     Indication: Acromegaly
     Route: 058
  2. INSULIN NOS [Concomitant]
     Active Substance: INSULIN NOS
     Dosage: APPLICATION, 38 ML DURING THE MORNING
  3. INSULIN NOS [Concomitant]
     Active Substance: INSULIN NOS
     Dosage: APPLICATION, 20ML DURING THE LUNCH
  4. INSULIN NOS [Concomitant]
     Active Substance: INSULIN NOS
     Dosage: APPLICATION, 20ML DURING THE DINNER
  5. HYDROCHLOROTHIAZIDE [Concomitant]
     Active Substance: HYDROCHLOROTHIAZIDE
     Dosage: DAILY DOSE 1, 2 5MG
     Route: 048
  6. ENALAPRIL MALEATE [Concomitant]
     Active Substance: ENALAPRIL MALEATE
     Dosage: DAILY DOSE 1
     Route: 048
  7. CALCIUM [Concomitant]
     Active Substance: CALCIUM
     Dosage: DAILY DOSE 1
     Route: 048
  8. CHOLECALCIFEROL [Concomitant]
     Active Substance: CHOLECALCIFEROL
     Dosage: DAILY DOSE 1
     Route: 048
  9. CILOSTAZOL [Concomitant]
     Active Substance: CILOSTAZOL
     Dosage: DAILY DOSE 1
     Route: 048

REACTIONS (2)
  - Death [Fatal]
  - Product dose omission issue [Unknown]

NARRATIVE: CASE EVENT DATE: 20241105
